FAERS Safety Report 20715682 (Version 1)
Quarter: 2022Q2

REPORT INFORMATION
  Report Type: Report from Study
  Country: UA (occurrence: UA)
  Receive Date: 20220415
  Receipt Date: 20220415
  Transmission Date: 20220721
  Serious: Yes (Life-Threatening, Hospitalization, Other)
  Sender: FDA-Public Use
  Company Number: UA-CELGENE-UKR-20171200038

PATIENT
  Age: 51 Year
  Sex: Male
  Weight: 80 kg

DRUGS (3)
  1. OZANIMOD [Suspect]
     Active Substance: OZANIMOD
     Indication: Colitis ulcerative
     Dosage: DAILY DOSE : 1 CAPSULE?TOTAL DOSE : 344 CAPSULE?UNIT DOSE : 1 CAPSULE?1 CAPSULE
     Route: 048
     Dates: start: 20161222, end: 20171201
  2. salofalk [Concomitant]
     Indication: Colitis ulcerative
     Dosage: 2000 MILLIGRAM
     Route: 048
     Dates: start: 20160801
  3. PANCRELIPASE [Concomitant]
     Active Substance: PANCRELIPASE
     Indication: Colitis ulcerative
     Dosage: DAILY DOSE : 2000 ?UNIT DOSE : 1000 ?1000 U
     Route: 048
     Dates: start: 20160901

REACTIONS (1)
  - Rectal cancer stage II [Not Recovered/Not Resolved]

NARRATIVE: CASE EVENT DATE: 20171122
